FAERS Safety Report 21215772 (Version 4)
Quarter: 2023Q2

REPORT INFORMATION
  Report Type: Report from Study
  Country: BY (occurrence: BY)
  Receive Date: 20220816
  Receipt Date: 20230607
  Transmission Date: 20230721
  Serious: Yes (Life-Threatening, Hospitalization, Other)
  Sender: FDA-Public Use
  Company Number: BY-MYLANLABS-2022M1086814

PATIENT
  Age: 46 Year
  Sex: Male
  Weight: 58 kg

DRUGS (12)
  1. PRETOMANID [Suspect]
     Active Substance: PRETOMANID
     Indication: Product used for unknown indication
     Dosage: 200 MILLIGRAM, QD (200 MG OD PO)
     Route: 048
     Dates: start: 20220404, end: 20220711
  2. BEDAQUILINE [Suspect]
     Active Substance: BEDAQUILINE
     Indication: Product used for unknown indication
     Dosage: 400 MILLIGRAM, QD (FOR 2 WKS THEN 200 MG TIW PO)
     Route: 048
     Dates: start: 20220404, end: 20220711
  3. BEDAQUILINE [Suspect]
     Active Substance: BEDAQUILINE
     Dosage: 200 MILLIGRAM, Q3W
     Route: 048
     Dates: start: 20220404, end: 20220711
  4. BEDAQUILINE [Suspect]
     Active Substance: BEDAQUILINE
     Dosage: 200 MILLIGRAM, Q3W (200 MG 3 TIMES A WEEK)
     Route: 048
     Dates: start: 20220418
  5. LINEZOLID [Suspect]
     Active Substance: LINEZOLID
     Indication: Product used for unknown indication
     Dosage: 600 MILLIGRAM, QD (600 MG OD PO)
     Route: 048
     Dates: start: 20220404, end: 20220711
  6. MOXIFLOXACIN [Suspect]
     Active Substance: MOXIFLOXACIN
     Indication: Product used for unknown indication
     Dosage: 400 MILLIGRAM, QD (400 MG OD PO)
     Route: 048
     Dates: start: 20220404, end: 20220506
  7. CLOFAZIMINE [Suspect]
     Active Substance: CLOFAZIMINE
     Indication: Product used for unknown indication
     Dosage: 100 MILLIGRAM, QD (100 MG OD PO)
     Route: 048
     Dates: start: 20220506, end: 20220711
  8. DOLUTEGRAVIR [Concomitant]
     Active Substance: DOLUTEGRAVIR
     Indication: HIV infection
     Dosage: 50 MILLIGRAM, QD (50 MG DAILY ORALLY)
     Route: 048
     Dates: start: 20220328, end: 20220712
  9. DOLUTEGRAVIR [Concomitant]
     Active Substance: DOLUTEGRAVIR
     Dosage: 50 MILLIGRAM, QD, (50 MG DAILY ORALLY)
     Route: 048
     Dates: start: 20220818
  10. TRUVADA [Concomitant]
     Active Substance: EMTRICITABINE\TENOFOVIR DISOPROXIL FUMARATE
     Indication: HIV infection
     Dosage: 300/200 MG DAILY ORALLY
     Route: 048
     Dates: start: 20220328, end: 20220712
  11. COTRIMOXAZOLE [Concomitant]
     Active Substance: SULFAMETHOXAZOLE\TRIMETHOPRIM
     Indication: HIV infection
     Dosage: 960 MILLIGRAM, QD (960 MG DAILY ORALLY)
     Route: 048
     Dates: start: 20220328
  12. LOPINAVIR\RITONAVIR [Concomitant]
     Active Substance: LOPINAVIR\RITONAVIR
     Indication: HIV infection
     Dosage: UNK UNK, BID, (200/50 MG 2 TIMES A DAY)
     Route: 065
     Dates: start: 20220818

REACTIONS (3)
  - Acute kidney injury [Recovered/Resolved]
  - Pancreatitis chronic [Recovered/Resolved]
  - Aspartate aminotransferase increased [Recovering/Resolving]

NARRATIVE: CASE EVENT DATE: 20220712
